FAERS Safety Report 14505964 (Version 1)
Quarter: 2018Q1

REPORT INFORMATION
  Report Type: Spontaneous
  Country: KR (occurrence: KR)
  Receive Date: 20180208
  Receipt Date: 20180208
  Transmission Date: 20180509
  Serious: Yes (Other)
  Sender: FDA-Public Use
  Company Number: KR-BAYER-2018-021059

PATIENT
  Sex: Female

DRUGS (3)
  1. MIRENA [Suspect]
     Active Substance: LEVONORGESTREL
     Dosage: 20 MCG/24HR, CONT
     Route: 015
     Dates: start: 201711
  2. MIRENA [Suspect]
     Active Substance: LEVONORGESTREL
     Dosage: UNK
  3. MIRENA [Suspect]
     Active Substance: LEVONORGESTREL
     Dosage: 20 MCG/24HR, CONT
     Route: 015

REACTIONS (12)
  - Pain [None]
  - Fluid intake reduced [None]
  - Oedema [None]
  - Dyspepsia [None]
  - Seborrhoeic dermatitis [None]
  - Weight increased [None]
  - Device dislocation [None]
  - Procedural pain [None]
  - Constipation [None]
  - Insomnia [None]
  - Ovarian mass [None]
  - Acne [None]
